FAERS Safety Report 6250129-0 (Version None)
Quarter: 2009Q2

REPORT INFORMATION
  Report Type: 
  Country: None (occurrence: None)
  Receive Date: 20090626
  Receipt Date: 20090612
  Transmission Date: 20091009
  Serious: Yes (Hospitalization, Other)
  Sender: FDA-Public Use
  Company Number: DSA_33797_2009

PATIENT
  Sex: Female

DRUGS (5)
  1. ATIVAN [Suspect]
     Indication: AUTONOMIC NERVOUS SYSTEM IMBALANCE
     Dosage: 0.5 MG TID, DF, DF
     Dates: start: 19890101
  2. ATIVAN [Suspect]
     Indication: AUTONOMIC NERVOUS SYSTEM IMBALANCE
     Dosage: 0.5 MG TID, DF, DF
     Dates: start: 20090101
  3. LORAZEPAM [Suspect]
     Indication: DRUG USE FOR UNKNOWN INDICATION
     Dosage: 0.5 MG TID
     Dates: end: 20070101
  4. DILAUDID [Suspect]
     Indication: DRUG USE FOR UNKNOWN INDICATION
     Dosage: DF
  5. VITAMIN B-12 [Concomitant]

REACTIONS (10)
  - CARDIAC ARREST [None]
  - CHEST PAIN [None]
  - CONSTIPATION [None]
  - DRUG WITHDRAWAL SYNDROME [None]
  - GASTROINTESTINAL DISORDER [None]
  - MUCOUS MEMBRANE DISORDER [None]
  - MUSCLE SPASMS [None]
  - RASH [None]
  - UNEVALUABLE EVENT [None]
  - URINARY TRACT INFECTION [None]
